FAERS Safety Report 4935643-X (Version None)
Quarter: 2006Q1

REPORT INFORMATION
  Report Type: 
  Country: None (occurrence: None)
  Receive Date: 20060302
  Receipt Date: 20060213
  Transmission Date: 20060701
  Serious: Yes (Death)
  Sender: FDA-Public Use
  Company Number: US200602002848

PATIENT
  Age: 67 Year
  Sex: Female

DRUGS (2)
  1. FORTEO [Suspect]
     Indication: OSTEOPOROSIS
     Dates: start: 20060126, end: 20060127
  2. FORTEO [Concomitant]

REACTIONS (3)
  - CORONARY ARTERY DISEASE [None]
  - COUGH [None]
  - PHARMACEUTICAL PRODUCT COMPLAINT [None]
